FAERS Safety Report 6771544-2 (Version None)
Quarter: 2010Q2

REPORT INFORMATION
  Report Type: 
  Country: None (occurrence: None)
  Receive Date: 20100616
  Receipt Date: 20100607
  Transmission Date: 20101027
  Serious: Yes (Other)
  Sender: FDA-Public Use
  Company Number: CA-ASTRAZENECA-2010SE26889

PATIENT
  Age: 45 Year
  Sex: Female

DRUGS (9)
  1. NEXIUM [Suspect]
     Route: 048
  2. CRESTOR [Suspect]
     Route: 048
  3. METOPROLOL [Suspect]
  4. ATIVAN [Suspect]
  5. RELENZA [Suspect]
     Route: 055
  6. COMBIVENT [Concomitant]
  7. FLOVENT [Concomitant]
  8. PREDNISONE [Concomitant]
  9. SALBUTAMOL [Concomitant]

REACTIONS (1)
  - ASTHMA [None]
